FAERS Safety Report 7546506-8 (Version None)
Quarter: 2011Q2

REPORT INFORMATION
  Report Type: 
  Country: None (occurrence: None)
  Receive Date: 20110614
  Receipt Date: 20110606
  Transmission Date: 20111010
  Serious: Yes (Other)
  Sender: FDA-Public Use
  Company Number: GB-TEVA-285135ISR

PATIENT
  Age: 21 Year
  Sex: Female

DRUGS (2)
  1. RISPERIDONE [Suspect]
  2. ESCITALOPRAM [Suspect]
     Indication: ANXIETY
     Dosage: 20 MILLIGRAM;
     Route: 048

REACTIONS (1)
  - OCULOGYRIC CRISIS [None]
